FAERS Safety Report 9978080 (Version 1)
Quarter: 2014Q1

REPORT INFORMATION
  Report Type: Spontaneous
  Country: US (occurrence: US)
  Receive Date: 20140306
  Receipt Date: 20140306
  Transmission Date: 20141002
  Serious: Yes (Other)
  Sender: FDA-Public Use
  Company Number: US-PFIZER INC-2014062512

PATIENT
  Age: 53 Year
  Sex: Female
  Weight: 72.56 kg

DRUGS (9)
  1. LYRICA [Suspect]
     Indication: NERVE COMPRESSION
     Dosage: 50 MG, 3X/DAY
     Route: 048
  2. LYRICA [Suspect]
     Indication: NERVE COMPRESSION
  3. LYRICA [Suspect]
     Indication: MUSCLE SPASMS
  4. ENABLEX [Concomitant]
     Indication: INCONTINENCE
     Dosage: UNK
  5. ALLEGRA-D 24 HOUR [Concomitant]
     Indication: HYPERSENSITIVITY
     Dosage: UNK
  6. HYDROCHLOROTHIAZIDE [Concomitant]
     Dosage: UNK
  7. SINGULAIR [Concomitant]
     Indication: ASTHMA
     Dosage: UNK
  8. OMEPRAZOLE [Concomitant]
     Dosage: UNK
  9. ESTRADIOL [Concomitant]
     Dosage: UNK

REACTIONS (2)
  - Weight increased [Not Recovered/Not Resolved]
  - Vitamin B12 deficiency [Unknown]
